FAERS Safety Report 7349016-6 (Version None)
Quarter: 2011Q1

REPORT INFORMATION
  Report Type: 
  Country: None (occurrence: None)
  Receive Date: 20110225
  Receipt Date: 20101105
  Transmission Date: 20110831
  Serious: No
  Sender: FDA-Public Use
  Company Number: 315189

PATIENT
  Age: 59 Year
  Sex: Female

DRUGS (2)
  1. VICTOZA [Suspect]
     Indication: TYPE 2 DIABETES MELLITUS
     Dosage: 0.6 MG, QD, SUBCUTANEOUS
     Route: 058
     Dates: start: 20100901
  2. GLIPIZIDE [Concomitant]

REACTIONS (5)
  - NAUSEA [None]
  - OROPHARYNGEAL PAIN [None]
  - BLOOD GLUCOSE INCREASED [None]
  - MALAISE [None]
  - DYSPHONIA [None]
